FAERS Safety Report 7686370-X (Version None)
Quarter: 2011Q3

REPORT INFORMATION
  Report Type: 
  Country: None (occurrence: None)
  Receive Date: 20110816
  Receipt Date: 20110811
  Transmission Date: 20111222
  Serious: Yes (Other)
  Sender: FDA-Public Use
  Company Number: ES-GLAXOSMITHKLINE-B0739377A

PATIENT
  Age: 73 Year
  Sex: Male
  Weight: 76 kg

DRUGS (2)
  1. TAMSULOSIN HCL [Suspect]
     Indication: BENIGN PROSTATIC HYPERPLASIA
     Route: 048
     Dates: start: 20060101, end: 20110504
  2. DUTASTERIDE/TAMSULOSIN HYDROCHLORIDE [Suspect]
     Indication: PROSTATE CANCER
     Dosage: 1CAP PER DAY
     Route: 048
     Dates: start: 20110505, end: 20110608

REACTIONS (2)
  - BREAST CANCER MALE [None]
  - GYNAECOMASTIA [None]
